FAERS Safety Report 20725859 (Version 3)
Quarter: 2022Q3

REPORT INFORMATION
  Report Type: Spontaneous
  Country: US (occurrence: US)
  Receive Date: 20220419
  Receipt Date: 20220916
  Transmission Date: 20221026
  Serious: No
  Sender: FDA-Public Use
  Company Number: US-SA-SAC20220413001528

PATIENT
  Age: 64 Year
  Sex: Female

DRUGS (1)
  1. DUPIXENT [Suspect]
     Active Substance: DUPILUMAB
     Indication: Dermatitis atopic
     Dosage: 300 MG, FREQUENCY OTHER
     Route: 058
     Dates: start: 202109

REACTIONS (4)
  - Musculoskeletal stiffness [Unknown]
  - Joint stiffness [Unknown]
  - Eye inflammation [Unknown]
  - Arthralgia [Unknown]

NARRATIVE: CASE EVENT DATE: 20220411
